FAERS Safety Report 8144659-4 (Version None)
Quarter: 2012Q1

REPORT INFORMATION
  Report Type: 
  Country: None (occurrence: None)
  Receive Date: 20120217
  Receipt Date: 20120209
  Transmission Date: 20120608
  Serious: Yes (Death)
  Sender: FDA-Public Use
  Company Number: GB-JNJFOC-20110710831

PATIENT
  Sex: Female
  Weight: 101 kg

DRUGS (1)
  1. RIVAROXABAN [Suspect]
     Indication: KNEE OPERATION
     Route: 065
     Dates: start: 20110318, end: 20110330

REACTIONS (3)
  - DEEP VEIN THROMBOSIS [None]
  - PULMONARY EMBOLISM [None]
  - SKIN EXFOLIATION [None]
